FAERS Safety Report 7529252-6 (Version None)
Quarter: 2011Q2

REPORT INFORMATION
  Report Type: 
  Country: None (occurrence: None)
  Receive Date: 20110607
  Receipt Date: 20110602
  Transmission Date: 20111010
  Serious: Yes (Death)
  Sender: FDA-Public Use
  Company Number: JP-PFIZER INC-2011110725

PATIENT
  Age: 82 Year
  Sex: Female

DRUGS (3)
  1. ALBUMINAR [Concomitant]
     Dosage: UNK
     Dates: start: 20110520, end: 20110523
  2. PREDNISOLONE [Concomitant]
     Dosage: 40 MG DAILY
  3. UNASYN [Suspect]
     Indication: PNEUMONIA
     Dosage: 1.5 G, 2X/DAY
     Route: 042
     Dates: start: 20110520, end: 20110523

REACTIONS (2)
  - INTERSTITIAL LUNG DISEASE [None]
  - HEPATIC FUNCTION ABNORMAL [None]
